FAERS Safety Report 9672015 (Version 1)
Quarter: 2013Q4

REPORT INFORMATION
  Report Type: Spontaneous
  Country: US (occurrence: US)
  Receive Date: 20131106
  Receipt Date: 20131106
  Transmission Date: 20140711
  Serious: Yes (Hospitalization)
  Sender: FDA-Public Use
  Company Number: US-GLAXOSMITHKLINE-A1048525A

PATIENT
  Age: 69 Year
  Sex: Female

DRUGS (1)
  1. PROMACTA [Suspect]
     Indication: NEOPLASM MALIGNANT
     Dosage: 25MG UNKNOWN
     Route: 065
     Dates: start: 20130424

REACTIONS (1)
  - Platelet count decreased [Unknown]
